FAERS Safety Report 9790721 (Version 3)
Quarter: 2014Q1

REPORT INFORMATION
  Report Type: Spontaneous
  Country: AU (occurrence: AU)
  Receive Date: 20131231
  Receipt Date: 20140206
  Transmission Date: 20141002
  Serious: Yes (Death)
  Sender: FDA-Public Use
  Company Number: AU-GLAXOSMITHKLINE-B0956605A

PATIENT
  Age: 49 Year
  Sex: Male

DRUGS (7)
  1. REVOLADE [Suspect]
     Indication: IMMUNE THROMBOCYTOPENIC PURPURA
     Dosage: 25MG PER DAY
     Route: 065
     Dates: start: 20120710
  2. PREDNISOLONE [Concomitant]
  3. IMURAN [Concomitant]
  4. TACROLIMUS [Concomitant]
     Dosage: 1MG TWICE PER DAY
  5. RIBAVIRIN [Concomitant]
  6. ENTECAVIR [Concomitant]
  7. SOFOSBUVIR [Concomitant]
     Indication: HEPATITIS C

REACTIONS (7)
  - Pulmonary embolism [Fatal]
  - Staphylococcal sepsis [Fatal]
  - Cerebral haemorrhage [Unknown]
  - Endocarditis [Unknown]
  - Staphylococcal bacteraemia [Unknown]
  - Renal failure acute [Unknown]
  - Metabolic acidosis [Unknown]
